FAERS Safety Report 8268358 (Version 5)
Quarter: 2013Q2

REPORT INFORMATION
  Report Type: Spontaneous
  Country: US (occurrence: None)
  Receive Date: 20111122
  Receipt Date: 20120426
  Transmission Date: 20140414
  Serious: No
  Sender: FDA-Public Use
  Company Number: PHHY2011US30379

PATIENT
  Age: 56 Year
  Sex: Female

DRUGS (3)
  1. GILENYA (FTY) CAPSULE 0.5MG [Suspect]
     Indication: MULTIPLE SCLEROSIS
     Dosage: 0.5 MG, QD, ORAL
     Route: 048
     Dates: start: 20110310
  2. BONIVA [Concomitant]
  3. VITAMIN D (ERGOCALCIFEROL) [Concomitant]

REACTIONS (7)
  - DIZZINESS [None]
  - FATIGUE [None]
  - Impaired healing [None]
  - Malaise [None]
  - Multiple sclerosis relapse [None]
  - Platelet count decreased [None]
  - Hypoaesthesia [None]
